FAERS Safety Report 11196715 (Version 1)
Quarter: 2015Q2

REPORT INFORMATION
  Report Type: Spontaneous
  Country: US (occurrence: US)
  Receive Date: 20150617
  Receipt Date: 20150617
  Transmission Date: 20150821
  Serious: Yes (Hospitalization, Other)
  Sender: FDA-Public Use
  Company Number: US-DRREDDYS-USA/USA/15/0048696

PATIENT
  Age: 50 Year
  Sex: Male

DRUGS (7)
  1. OLANZAPINE FILM-COATED TABLET [Interacting]
     Active Substance: OLANZAPINE
     Indication: PRODUCT USED FOR UNKNOWN INDICATION
  2. RISPERIDONE. [Interacting]
     Active Substance: RISPERIDONE
     Indication: PRODUCT USED FOR UNKNOWN INDICATION
  3. LAMOTRIGINE TABLETS [Interacting]
     Active Substance: LAMOTRIGINE
     Indication: PRODUCT USED FOR UNKNOWN INDICATION
  4. DIVALPROEX SODIUM. [Suspect]
     Active Substance: DIVALPROEX SODIUM
     Indication: PRODUCT USED FOR UNKNOWN INDICATION
  5. LITHIUM. [Interacting]
     Active Substance: LITHIUM
     Indication: PRODUCT USED FOR UNKNOWN INDICATION
  6. QUETIAPINE [Interacting]
     Active Substance: QUETIAPINE
     Indication: PRODUCT USED FOR UNKNOWN INDICATION
     Dosage: QUETIAPINE 600 MG DAILY PLUS 200 MG TID PRN
  7. RISPERIDONE. [Interacting]
     Active Substance: RISPERIDONE

REACTIONS (2)
  - Drug interaction [Unknown]
  - Neuroleptic malignant syndrome [Recovered/Resolved]
